FAERS Safety Report 18218507 (Version 1)
Quarter: 2020Q3

REPORT INFORMATION
  Report Type: Spontaneous
  Country: US (occurrence: US)
  Receive Date: 20200831
  Receipt Date: 20200831
  Transmission Date: 20201103
  Serious: No
  Sender: FDA-Public Use
  Company Number: None

PATIENT
  Age: 69 Year
  Sex: Male
  Weight: 94 kg

DRUGS (1)
  1. FLUCONAZOLE (FLUCONAZOLE 2MG/ML INJ0 [Suspect]
     Active Substance: FLUCONAZOLE
     Indication: FUNGAL INFECTION
     Route: 042
     Dates: start: 20200131, end: 20200201

REACTIONS (9)
  - Illness [None]
  - Cognitive disorder [None]
  - Delirium [None]
  - Metabolic encephalopathy [None]
  - Confusional state [None]
  - Agitation [None]
  - Mental status changes [None]
  - Infection [None]
  - Hallucination, visual [None]

NARRATIVE: CASE EVENT DATE: 20200201
